FAERS Safety Report 7785792-6 (Version None)
Quarter: 2011Q3

REPORT INFORMATION
  Report Type: 
  Country: None (occurrence: None)
  Receive Date: 20110929
  Receipt Date: 20110922
  Transmission Date: 20111222
  Serious: Yes (Other)
  Sender: FDA-Public Use
  Company Number: FR-KINGPHARMUSA00001-K201100773

PATIENT
  Age: 76 Year
  Sex: Male

DRUGS (3)
  1. METOPROLOL TARTRATE [Concomitant]
     Indication: ARRHYTHMIA
     Dosage: UNK
     Dates: start: 20100101
  2. FLUPHENAZINE [Concomitant]
     Indication: PSYCHOTIC DISORDER
     Dosage: UNK
     Dates: start: 19920101
  3. ALTACE [Suspect]
     Indication: HYPERTENSION
     Dosage: 2.5 MG, BID
     Route: 048
     Dates: start: 20081125, end: 20110905

REACTIONS (3)
  - COUGH [None]
  - PULMONARY FIBROSIS [None]
  - INTERSTITIAL LUNG DISEASE [None]
